FAERS Safety Report 6633525-9 (Version None)
Quarter: 2010Q1

REPORT INFORMATION
  Report Type: 
  Country: None (occurrence: None)
  Receive Date: 20100312
  Receipt Date: 20100226
  Transmission Date: 20100710
  Serious: Yes (Other)
  Sender: FDA-Public Use
  Company Number: US-JNJFOC-20100303225

PATIENT
  Age: 5 Year
  Sex: Male

DRUGS (2)
  1. CHILDREN'S TYLENOL PLUS COUGH + SORE THROAT (CHERRY) [Suspect]
     Indication: NASOPHARYNGITIS
     Route: 048
  2. UNSPECIFIED ANTIHISTAMINES [Suspect]
     Indication: NASOPHARYNGITIS
     Dosage: 1/2 OF A DOSING CAPFUL ONCE

REACTIONS (5)
  - HEART RATE INCREASED [None]
  - INSOMNIA [None]
  - PRODUCT TAMPERING [None]
  - SOMNAMBULISM [None]
  - WRONG DRUG ADMINISTERED [None]
